FAERS Safety Report 6030824-9 (Version None)
Quarter: 2009Q1

REPORT INFORMATION
  Report Type: 
  Country: None (occurrence: None)
  Receive Date: 20090106
  Receipt Date: 20081223
  Transmission Date: 20090719
  Serious: Yes (Hospitalization)
  Sender: FDA-Public Use
  Company Number: 2008SP025019

PATIENT
  Age: 64 Year
  Sex: Female

DRUGS (1)
  1. TEMODAL [Suspect]
     Indication: ASTROCYTOMA MALIGNANT
     Dosage: 200 MG/M2; PO
     Route: 048
     Dates: start: 20081031, end: 20081105

REACTIONS (2)
  - PANCYTOPENIA [None]
  - PYREXIA [None]
